FAERS Safety Report 5914204-X (Version None)
Quarter: 2008Q4

REPORT INFORMATION
  Report Type: 
  Country: None (occurrence: None)
  Receive Date: 20081009
  Receipt Date: 20080929
  Transmission Date: 20090506
  Serious: Yes (Hospitalization)
  Sender: FDA-Public Use
  Company Number: ZA-PFIZER INC-2008081751

PATIENT
  Age: 17 Year
  Sex: Male

DRUGS (2)
  1. GEODON [Suspect]
     Indication: AGGRESSION
     Route: 048
     Dates: start: 20080101
  2. ABILIFY [Concomitant]

REACTIONS (3)
  - AGGRESSION [None]
  - DROOLING [None]
  - LETHARGY [None]
